FAERS Safety Report 8575459-9 (Version None)
Quarter: 2012Q3

REPORT INFORMATION
  Report Type: 
  Country: None (occurrence: None)
  Receive Date: 20120807
  Receipt Date: 20120730
  Transmission Date: 20120928
  Serious: Yes (Hospitalization)
  Sender: FDA-Public Use
  Company Number: PHHY2012FR051007

PATIENT
  Sex: Male
  Weight: 73 kg

DRUGS (3)
  1. EVEROLIMUS [Suspect]
     Indication: RENAL CANCER METASTATIC
     Dosage: 10 MG, DAILY
     Route: 048
     Dates: start: 20110530, end: 20110805
  2. EVEROLIMUS [Suspect]
     Dosage: 10 MG, UNK
     Route: 048
     Dates: start: 20110816
  3. KEPPRA [Concomitant]
     Indication: CONVULSION
     Dosage: 500 MG, BID
     Dates: start: 20100101

REACTIONS (8)
  - GINGIVAL PAIN [None]
  - LIBIDO DECREASED [None]
  - DYSPHAGIA [None]
  - COUGH [None]
  - INSOMNIA [None]
  - RASH [None]
  - DIARRHOEA [None]
  - GINGIVITIS [None]
